FAERS Safety Report 4730324-X (Version None)
Quarter: 2005Q3

REPORT INFORMATION
  Report Type: 
  Country: None (occurrence: None)
  Receive Date: 20050725
  Receipt Date: 20050328
  Transmission Date: 20060218
  Serious: No
  Sender: FDA-Public Use
  Company Number: USA050495396

PATIENT
  Age: 16 Year
  Sex: Female

DRUGS (2)
  1. STRATTERA [Suspect]
     Dosage: 60 MG/2 DAY
  2. PROZAC [Suspect]
     Dosage: 20 MG IN THE MORNING

REACTIONS (2)
  - NIGHT SWEATS [None]
  - PRESCRIBED OVERDOSE [None]
